FAERS Safety Report 9658898 (Version 1)
Quarter: 2013Q4

REPORT INFORMATION
  Report Type: Spontaneous
  Country: US (occurrence: US)
  Receive Date: 20131030
  Receipt Date: 20131030
  Transmission Date: 20140711
  Serious: No
  Sender: FDA-Public Use
  Company Number: US-009507513-1310USA013766

PATIENT
  Sex: Female

DRUGS (1)
  1. JANUVIA [Suspect]
     Indication: DIABETES MELLITUS
     Dosage: UNK; 1 UNIT OF USE BLISTERPACK OF 30
     Route: 048
     Dates: start: 2011

REACTIONS (3)
  - Nail injury [Unknown]
  - Product blister packaging issue [Unknown]
  - Wrong technique in drug usage process [Unknown]
